FAERS Safety Report 9362805 (Version 1)
Quarter: 2013Q2

REPORT INFORMATION
  Report Type: Spontaneous
  Country: US (occurrence: US)
  Receive Date: 20130624
  Receipt Date: 20130624
  Transmission Date: 20140414
  Serious: Yes (Hospitalization)
  Sender: FDA-Public Use
  Company Number: US-ROXANE LABORATORIES, INC.-2013-RO-00998RO

PATIENT
  Age: 50 Year
  Sex: Male

DRUGS (5)
  1. PREDNISONE [Suspect]
     Indication: ASTHMA
     Dosage: 10 MG
  2. ALBUTEROL [Concomitant]
  3. AMLODIPINE [Concomitant]
  4. DILTIAZEM [Concomitant]
  5. WARFARIN [Concomitant]

REACTIONS (2)
  - Appendicitis [Recovered/Resolved]
  - Tinea versicolour [Recovered/Resolved]
